APPROVED DRUG PRODUCT: GENTAMICIN SULFATE IN SODIUM CHLORIDE 0.9% IN PLASTIC CONTAINER
Active Ingredient: GENTAMICIN SULFATE
Strength: EQ 1.2MG BASE/ML
Dosage Form/Route: INJECTABLE;INJECTION
Application: A062373 | Product #007
Applicant: BAXTER HEALTHCARE CORP
Approved: Sep 7, 1982 | RLD: No | RS: No | Type: RX